FAERS Safety Report 7166982-2 (Version None)
Quarter: 2010Q4

REPORT INFORMATION
  Report Type: 
  Country: None (occurrence: None)
  Receive Date: 20101216
  Receipt Date: 20101207
  Transmission Date: 20110411
  Serious: Yes (Hospitalization)
  Sender: FDA-Public Use
  Company Number: A0805916A

PATIENT
  Age: 67 Year
  Sex: Male

DRUGS (8)
  1. AVANDIA [Suspect]
     Indication: CARDIAC DISORDER
     Dosage: 4MG TWICE PER DAY
     Route: 065
     Dates: start: 20000607, end: 20070522
  2. PLAVIX [Concomitant]
  3. PEPCID [Concomitant]
  4. ASPIRIN [Concomitant]
  5. TRENTAL [Concomitant]
  6. SYNTHROID [Concomitant]
  7. GLUCOTROL [Concomitant]
  8. TRIAMTERENE AND HYDROCHLOROTHIAZIDE [Concomitant]

REACTIONS (2)
  - CORONARY ARTERY OCCLUSION [None]
  - MYOCARDIAL INFARCTION [None]
